FAERS Safety Report 5918577-3 (Version None)
Quarter: 2008Q4

REPORT INFORMATION
  Report Type: 
  Country: None (occurrence: None)
  Receive Date: 20081010
  Receipt Date: 20080923
  Transmission Date: 20090506
  Serious: Yes (Life-Threatening, Hospitalization, Other)
  Sender: FDA-Public Use
  Company Number: TNZIE200800111

PATIENT
  Age: 24 Year
  Sex: Female

DRUGS (2)
  1. INNOHEP [Suspect]
     Indication: PROPHYLAXIS
     Dosage: 175 IU/KG, DAILY, SUBCUTANEOUS, 4500 IU, DAILY, SUBCUTANEOUS, 175 IU/KG, DAILY, SUBCUTANEOUS
     Route: 058
  2. ASPIRIN [Concomitant]

REACTIONS (12)
  - CAESAREAN SECTION [None]
  - DRUG EXPOSURE DURING PREGNANCY [None]
  - ECLAMPSIA [None]
  - HYPERTENSION [None]
  - IDIOPATHIC THROMBOCYTOPENIC PURPURA [None]
  - NO THERAPEUTIC RESPONSE [None]
  - PETECHIAE [None]
  - PREMATURE BABY [None]
  - PREMATURE SEPARATION OF PLACENTA [None]
  - PURPURA [None]
  - THROMBOCYTOPENIA [None]
  - VAGINAL HAEMORRHAGE [None]
